FAERS Safety Report 6950092-0 (Version None)
Quarter: 2010Q3

REPORT INFORMATION
  Report Type: 
  Country: None (occurrence: None)
  Receive Date: 20100828
  Receipt Date: 20100325
  Transmission Date: 20110219
  Serious: No
  Sender: FDA-Public Use
  Company Number: US-ABBOTT-09P-163-0594845-00

PATIENT
  Weight: 103.51 kg

DRUGS (13)
  1. NIASPAN [Suspect]
     Indication: LOW DENSITY LIPOPROTEIN DECREASED
     Route: 048
     Dates: start: 20090613, end: 20090810
  2. NIASPAN [Suspect]
     Route: 048
     Dates: start: 20090810, end: 20100101
  3. NEXIUM [Concomitant]
     Indication: DYSPEPSIA
  4. COUMADIN [Concomitant]
     Indication: CORONARY ARTERY DISEASE
  5. FUROSEMIDE [Concomitant]
     Indication: CORONARY ARTERY DISEASE
     Dosage: UNKNOWN
  6. GABAPENTIN [Concomitant]
     Indication: RESTLESS LEGS SYNDROME
     Dosage: UNKNOWN
  7. TRICOR [Concomitant]
     Indication: BLOOD CHOLESTEROL INCREASED
     Dates: start: 20080101
  8. CARAFATE [Concomitant]
     Indication: HIATUS HERNIA
     Dates: start: 19990101
  9. REGLAN [Concomitant]
     Indication: DYSPEPSIA
     Dosage: UNKNOWN
  10. CARVEDILOL [Concomitant]
     Indication: CORONARY ARTERY DISEASE
     Dosage: UNKNOWN
  11. AMLODIPINE [Concomitant]
     Indication: CORONARY ARTERY DISEASE
  12. PAROXETINE HCL [Concomitant]
     Indication: ANXIETY
  13. FOLIC ACID [Concomitant]
     Indication: CORONARY ARTERY DISEASE

REACTIONS (5)
  - FLUSHING [None]
  - HYPERHIDROSIS [None]
  - PRURITUS [None]
  - SKIN BURNING SENSATION [None]
  - WOUND HAEMORRHAGE [None]
